FAERS Safety Report 15710127 (Version 3)
Quarter: 2019Q3

REPORT INFORMATION
  Report Type: Report from Study
  Country: ZA (occurrence: ZA)
  Receive Date: 20181211
  Receipt Date: 20190929
  Transmission Date: 20191004
  Serious: Yes (Hospitalization, Other)
  Sender: FDA-Public Use
  Company Number: PHHY2018ZA177204

PATIENT
  Age: 33 Year
  Sex: Female

DRUGS (1)
  1. TUVIGIN [Suspect]
     Active Substance: FINGOLIMOD HYDROCHLORIDE
     Indication: MULTIPLE SCLEROSIS
     Dosage: 0.5 MG, UNK
     Route: 048
     Dates: start: 20180815

REACTIONS (3)
  - Multiple sclerosis relapse [Unknown]
  - Blister [Recovering/Resolving]
  - Cyclitis [Recovering/Resolving]

NARRATIVE: CASE EVENT DATE: 20181124
